FAERS Safety Report 11421302 (Version 2)
Quarter: 2015Q3

REPORT INFORMATION
  Report Type: Spontaneous
  Country: US (occurrence: US)
  Receive Date: 20150826
  Receipt Date: 20150908
  Transmission Date: 20151125
  Serious: No
  Sender: FDA-Public Use
  Company Number: GXBR2015US001737

PATIENT
  Sex: Female
  Weight: 50.79 kg

DRUGS (2)
  1. BENADRYL [Concomitant]
     Active Substance: DIPHENHYDRAMINE HYDROCHLORIDE
     Indication: RASH
     Dosage: 25 MG, ONCE4SDO
     Route: 048
     Dates: start: 20150713
  2. TACROLIMUS. [Suspect]
     Active Substance: TACROLIMUS
     Indication: RASH
     Dosage: UNK DF, BID
     Route: 061
     Dates: start: 20150713

REACTIONS (1)
  - Drug effect decreased [Not Recovered/Not Resolved]
